FAERS Safety Report 25911534 (Version 1)
Quarter: 2025Q4

REPORT INFORMATION
  Report Type: Spontaneous
  Country: US (occurrence: US)
  Receive Date: 20251013
  Receipt Date: 20251013
  Transmission Date: 20260117
  Serious: No
  Sender: RANBAXY
  Company Number: US-SUN PHARMACEUTICAL INDUSTRIES LTD-2024R1-471644

PATIENT
  Sex: Male

DRUGS (4)
  1. LORATADINE AND PSEUDOEPHEDRINE SULFATE [Suspect]
     Active Substance: LORATADINE\PSEUDOEPHEDRINE SULFATE
     Indication: Nasal congestion
     Dosage: UNK
     Route: 065
     Dates: start: 20240924
  2. LORATADINE AND PSEUDOEPHEDRINE SULFATE [Suspect]
     Active Substance: LORATADINE\PSEUDOEPHEDRINE SULFATE
     Indication: Dyspnoea
  3. AMOXICILLIN [Concomitant]
     Active Substance: AMOXICILLIN
     Indication: Hypersensitivity
     Dosage: 1875 MILLIGRAM
     Route: 065
  4. IBUPROFEN [Concomitant]
     Active Substance: IBUPROFEN
     Indication: Pain management
     Dosage: 400 MILLIGRAM
     Route: 065

REACTIONS (1)
  - Rash macular [Unknown]
